FAERS Safety Report 13465092 (Version 1)
Quarter: 2017Q2

REPORT INFORMATION
  Report Type: Report from Study
  Country: GB (occurrence: GB)
  Receive Date: 20170421
  Receipt Date: 20170421
  Transmission Date: 20170830
  Serious: Yes (Life-Threatening, Other)
  Sender: FDA-Public Use
  Company Number: GB-ASTRAZENECA-2017SE41090

PATIENT
  Sex: Female

DRUGS (13)
  1. ACETYLSALICYLIC ACID [Suspect]
     Active Substance: ASPIRIN
     Indication: ACUTE CORONARY SYNDROME
     Route: 048
     Dates: start: 20150706
  2. BISOPROLOL [Concomitant]
     Active Substance: BISOPROLOL
  3. PRAVASTATIN. [Concomitant]
     Active Substance: PRAVASTATIN
  4. GLICAZIDE [Concomitant]
     Active Substance: GLICLAZIDE
  5. TICAGRELOR [Concomitant]
     Active Substance: TICAGRELOR
  6. AMLODIPINE [Concomitant]
     Active Substance: AMLODIPINE BESYLATE
  7. LISINOPRIL. [Concomitant]
     Active Substance: LISINOPRIL
  8. NOVORAPID [Concomitant]
     Active Substance: INSULIN ASPART
     Dosage: 100 UNITS/ML AS NEEDED
  9. HUMULIN NOS [Concomitant]
     Active Substance: INSULIN HUMAN
     Dosage: 100UNITS/ML
  10. TICAGRELOR [Suspect]
     Active Substance: TICAGRELOR
     Indication: ACUTE CORONARY SYNDROME
     Route: 048
     Dates: start: 20150706
  11. STUDY PROCEDURE [Suspect]
     Active Substance: INVESTIGATIONAL PRODUCT
     Indication: ACUTE CORONARY SYNDROME
     Route: 065
  12. LEVOTHYROXINE SODIUM. [Concomitant]
     Active Substance: LEVOTHYROXINE SODIUM
  13. PARACETAMOL [Concomitant]
     Active Substance: ACETAMINOPHEN
     Dosage: AS NEEDED

REACTIONS (1)
  - Coronary artery embolism [Recovered/Resolved]

NARRATIVE: CASE EVENT DATE: 20150706
